FAERS Safety Report 8176565-3 (Version None)
Quarter: 2012Q1

REPORT INFORMATION
  Report Type: 
  Country: None (occurrence: None)
  Receive Date: 20120301
  Receipt Date: 20120222
  Transmission Date: 20120608
  Serious: Yes (Death)
  Sender: FDA-Public Use
  Company Number: DE-JNJFOC-20120214006

PATIENT
  Sex: Female

DRUGS (29)
  1. DOCETAXEL [Suspect]
     Route: 042
  2. CIPROFLOXACIN [Concomitant]
     Route: 048
  3. DOXORUBICIN HCL [Suspect]
     Route: 040
  4. DOCETAXEL [Suspect]
     Route: 042
  5. CORTICOSTEROIDS [Concomitant]
     Route: 065
  6. DOXORUBICIN HCL [Suspect]
     Indication: BREAST CANCER
     Route: 040
  7. CYCLOPHOSPHAMIDE [Suspect]
     Indication: BREAST CANCER
     Route: 042
  8. CYCLOPHOSPHAMIDE [Suspect]
     Route: 042
  9. DOXORUBICIN HCL [Suspect]
     Route: 040
  10. DOCETAXEL [Suspect]
     Route: 042
  11. CIPROFLOXACIN [Concomitant]
     Indication: PROPHYLAXIS
     Route: 048
  12. DOCETAXEL [Suspect]
     Route: 042
  13. CIPROFLOXACIN [Concomitant]
     Route: 048
  14. DOXORUBICIN HCL [Suspect]
     Route: 040
  15. DOXORUBICIN HCL [Suspect]
     Route: 040
  16. CYCLOPHOSPHAMIDE [Suspect]
     Route: 042
  17. ANTIEMETIC [Concomitant]
     Indication: PROPHYLAXIS
     Route: 065
  18. CIPROFLOXACIN [Concomitant]
     Route: 048
  19. CYCLOPHOSPHAMIDE [Suspect]
     Route: 042
  20. DOCETAXEL [Suspect]
     Indication: BREAST CANCER
     Route: 042
  21. DOCETAXEL [Suspect]
     Route: 042
  22. CORTICOSTEROIDS [Concomitant]
     Indication: PREMEDICATION
     Route: 065
  23. CORTICOSTEROIDS [Concomitant]
     Route: 065
  24. DOXORUBICIN HCL [Suspect]
     Route: 040
  25. CYCLOPHOSPHAMIDE [Suspect]
     Route: 042
  26. CYCLOPHOSPHAMIDE [Suspect]
     Route: 042
  27. CORTICOSTEROIDS [Concomitant]
     Route: 065
  28. CIPROFLOXACIN [Concomitant]
     Route: 048
  29. CIPROFLOXACIN [Concomitant]
     Route: 048

REACTIONS (1)
  - SEPSIS [None]
